FAERS Safety Report 25996801 (Version 1)
Quarter: 2025Q4

REPORT INFORMATION
  Report Type: Spontaneous
  Country: US (occurrence: US)
  Receive Date: 20251104
  Receipt Date: 20251104
  Transmission Date: 20260117
  Serious: No
  Sender: ELI LILLY AND COMPANY
  Company Number: US-ELI_LILLY_AND_COMPANY-US202510022795

PATIENT
  Age: 52 Year
  Sex: Male

DRUGS (7)
  1. ZEPBOUND [Suspect]
     Active Substance: TIRZEPATIDE
     Indication: Blood cholesterol abnormal
     Dosage: UNK UNK, UNKNOWN
     Route: 065
  2. ZEPBOUND [Suspect]
     Active Substance: TIRZEPATIDE
     Indication: Blood cholesterol abnormal
     Dosage: 10 MG, UNKNOWN
     Route: 065
     Dates: start: 20251003, end: 20251017
  3. ZEPBOUND [Suspect]
     Active Substance: TIRZEPATIDE
     Indication: Blood cholesterol abnormal
     Dosage: 10 MG, UNKNOWN
     Route: 065
     Dates: start: 20251003, end: 20251017
  4. ZEPBOUND [Suspect]
     Active Substance: TIRZEPATIDE
     Indication: Blood cholesterol abnormal
     Dosage: 10 MG, UNKNOWN
     Route: 065
     Dates: start: 20251003, end: 20251017
  5. ZEPBOUND [Suspect]
     Active Substance: TIRZEPATIDE
     Indication: Blood cholesterol abnormal
     Dosage: 10 MG, UNKNOWN
     Route: 065
     Dates: start: 20251003, end: 20251017
  6. ZEPBOUND [Suspect]
     Active Substance: TIRZEPATIDE
     Indication: Blood cholesterol abnormal
     Dosage: 10 MG, UNKNOWN
     Route: 065
     Dates: start: 20251003, end: 20251017
  7. SYNTHROID [Concomitant]
     Active Substance: LEVOTHYROXINE SODIUM
     Indication: Thyroid disorder

REACTIONS (2)
  - Off label use [Unknown]
  - Injection site mass [Unknown]

NARRATIVE: CASE EVENT DATE: 20251017
